FAERS Safety Report 6760636-X (Version None)
Quarter: 2010Q2

REPORT INFORMATION
  Report Type: 
  Country: None (occurrence: None)
  Receive Date: 20100608
  Receipt Date: 20100527
  Transmission Date: 20101027
  Serious: Yes (Hospitalization)
  Sender: FDA-Public Use
  Company Number: EG-PFIZER INC-2010066850

PATIENT
  Age: 58 Year
  Sex: Female

DRUGS (7)
  1. ZITHROMAX [Suspect]
     Indication: LOWER RESPIRATORY TRACT INFECTION
     Dosage: 500 MG, 1X/DAY
     Route: 042
     Dates: start: 20100525, end: 20100526
  2. CEFOBID [Concomitant]
     Indication: LOWER RESPIRATORY TRACT INFECTION
     Dosage: 2 G, 2X/DAY
     Route: 042
     Dates: start: 20100525, end: 20100526
  3. SERETIDE [Concomitant]
     Indication: DYSPNOEA
     Dosage: 500 MG, 2X/DAY
     Route: 048
     Dates: start: 20100525, end: 20100526
  4. SERETIDE [Concomitant]
     Indication: CHRONIC OBSTRUCTIVE PULMONARY DISEASE
  5. SPIRIVA [Concomitant]
     Indication: CHRONIC OBSTRUCTIVE PULMONARY DISEASE
     Dosage: UNK
     Dates: start: 20100525, end: 20100526
  6. ALVESCO [Concomitant]
     Indication: CHRONIC OBSTRUCTIVE PULMONARY DISEASE
     Dosage: 160 MG, 2X/DAY
     Dates: start: 20100525, end: 20100526
  7. VIAGRA [Concomitant]
     Indication: PULMONARY HYPERTENSION
     Dosage: 12.5 MG, 1X/DAY
     Route: 048
     Dates: start: 20100525, end: 20100526

REACTIONS (4)
  - BRONCHOSPASM [None]
  - CARDIOGENIC SHOCK [None]
  - HALLUCINATION [None]
  - RESPIRATORY FAILURE [None]
